FAERS Safety Report 7449254-8 (Version None)
Quarter: 2011Q2

REPORT INFORMATION
  Report Type: 
  Country: None (occurrence: None)
  Receive Date: 20110502
  Receipt Date: 20110330
  Transmission Date: 20111010
  Serious: No
  Sender: FDA-Public Use
  Company Number: US-BAYER-2011-029630

PATIENT
  Age: 23 Year
  Sex: Female
  Weight: 81.633 kg

DRUGS (2)
  1. LEVORA 0.15/30-21 [Concomitant]
     Indication: CONTRACEPTION
     Dosage: UNK
  2. ALEVE (CAPLET) [Suspect]
     Dosage: 880 MG, ONCE
     Dates: start: 20110330, end: 20110330

REACTIONS (1)
  - NO ADVERSE EVENT [None]
